FAERS Safety Report 5199047-X (Version None)
Quarter: 2006Q4

REPORT INFORMATION
  Report Type: 
  Country: None (occurrence: None)
  Receive Date: 20060919
  Receipt Date: 20050920
  Transmission Date: 20070319
  Serious: Yes (Other)
  Sender: FDA-Public Use
  Company Number: HQWYE633826SEP05

PATIENT
  Age: 56 Year
  Sex: Male
  Weight: 77.18 kg

DRUGS (3)
  1. ADVIL [Suspect]
     Indication: HEADACHE
     Dosage: 1 TABLET AS NEEDED, ORAL
     Route: 048
     Dates: start: 20050101, end: 20050917
  2. NASONEX [Concomitant]
  3. ADVAIR DISKUS 100/50 [Concomitant]

REACTIONS (5)
  - EAR PRURITUS [None]
  - EYE SWELLING [None]
  - LACRIMATION INCREASED [None]
  - SNEEZING [None]
  - THROAT IRRITATION [None]
